FAERS Safety Report 5628116-2 (Version None)
Quarter: 2008Q1

REPORT INFORMATION
  Report Type: 
  Country: None (occurrence: None)
  Receive Date: 20080215
  Receipt Date: 20080206
  Transmission Date: 20080703
  Serious: Yes (Hospitalization)
  Sender: FDA-Public Use
  Company Number: US-ABBOTT-07P-163-0431144-00

PATIENT
  Sex: Male
  Weight: 109.09 kg

DRUGS (5)
  1. HUMIRA [Suspect]
     Indication: PSORIATIC ARTHROPATHY
     Route: 058
     Dates: start: 20060518, end: 20070701
  2. HUMIRA [Suspect]
     Route: 058
     Dates: start: 20071101, end: 20071219
  3. BP PILL [Concomitant]
     Indication: HYPERTENSION
     Route: 048
  4. CHOLESTEROL PILL [Concomitant]
     Indication: BLOOD CHOLESTEROL INCREASED
     Route: 048
  5. ACITRETIN [Concomitant]
     Indication: PSORIASIS
     Route: 048

REACTIONS (4)
  - FATIGUE [None]
  - NEUROPATHY PERIPHERAL [None]
  - PSORIATIC ARTHROPATHY [None]
  - WEIGHT DECREASED [None]
